FAERS Safety Report 9397626 (Version 1)
Quarter: 2013Q3

REPORT INFORMATION
  Report Type: Spontaneous
  Country: US (occurrence: US)
  Receive Date: 20130712
  Receipt Date: 20130712
  Transmission Date: 20140515
  Serious: Yes (Other)
  Sender: FDA-Public Use
  Company Number: US-ELI_LILLY_AND_COMPANY-US201307001659

PATIENT
  Sex: Female

DRUGS (11)
  1. ZYPREXA RELPREVV [Suspect]
     Indication: BIPOLAR DISORDER
     Dosage: 405 MG, MONTHLY (1/M)
     Route: 030
     Dates: start: 20130627
  2. ZYPREXA RELPREVV [Suspect]
     Indication: SCHIZOPHRENIA
  3. ZYPREXA [Suspect]
     Indication: BIPOLAR DISORDER
     Dosage: 10 MG, QD
  4. ZYPREXA [Suspect]
     Indication: SCHIZOPHRENIA
     Dosage: 5 MG, EACH EVENING
  5. SEROQUEL [Suspect]
  6. SIMVASTATIN [Concomitant]
     Indication: BLOOD CHOLESTEROL INCREASED
     Dosage: 20 MG, EACH EVENING
  7. TRILEPTAL                               /SCH/ [Concomitant]
     Indication: BIPOLAR DISORDER
     Dosage: 300 MG, UNK
  8. TRILEPTAL                               /SCH/ [Concomitant]
     Indication: AFFECTIVE DISORDER
  9. ATIVAN [Concomitant]
     Indication: SLEEP DISORDER
     Dosage: 0.5 MG, EACH EVENING
  10. LEVOTHYROXIN [Concomitant]
     Indication: THYROID DISORDER
     Dosage: 125 MG, QOD
  11. LEVOTHYROXIN [Concomitant]
     Dosage: 137 MG, UNK

REACTIONS (6)
  - Thyroid cancer [Unknown]
  - Presyncope [Recovering/Resolving]
  - Tremor [Recovering/Resolving]
  - Dizziness [Recovering/Resolving]
  - Palpitations [Recovering/Resolving]
  - Tremor [Not Recovered/Not Resolved]
